FAERS Safety Report 10010627 (Version 1)
Quarter: 2014Q1

REPORT INFORMATION
  Report Type: Spontaneous
  Country: US (occurrence: None)
  Receive Date: 20140312
  Receipt Date: 20140312
  Transmission Date: 20141002
  Serious: Yes (Hospitalization)
  Sender: FDA-Public Use
  Company Number: None

PATIENT
  Age: 88 Year
  Sex: Male
  Weight: 88.8 kg

DRUGS (2)
  1. CARVEDILOL [Suspect]
     Indication: HYPERTENSION
     Route: 048
     Dates: start: 20120130, end: 20140220
  2. PRAZOSIN [Suspect]
     Indication: NIGHTMARE
     Dosage: AT BED TIME,PO.
     Route: 048
     Dates: start: 20131216

REACTIONS (4)
  - Dizziness [None]
  - Bradycardia [None]
  - Investigation [None]
  - Fall [None]
